FAERS Safety Report 4719092-5 (Version None)
Quarter: 2005Q3

REPORT INFORMATION
  Report Type: 
  Country: None (occurrence: None)
  Receive Date: 20050720
  Receipt Date: 20050628
  Transmission Date: 20060218
  Serious: Yes (Death)
  Sender: FDA-Public Use
  Company Number: US-MERCK-0506USA03988

PATIENT
  Sex: Female

DRUGS (2)
  1. VIOXX [Suspect]
     Route: 048
     Dates: start: 19991101, end: 20000101
  2. VIOXX [Suspect]
     Route: 048
     Dates: start: 20010401, end: 20020601

REACTIONS (2)
  - CARDIAC ARREST [None]
  - SUDDEN CARDIAC DEATH [None]
